FAERS Safety Report 13239402 (Version 2)
Quarter: 2017Q1

REPORT INFORMATION
  Report Type: Spontaneous
  Country: US (occurrence: US)
  Receive Date: 20170216
  Receipt Date: 20170315
  Transmission Date: 20170428
  Serious: Yes (Hospitalization, Other)
  Sender: FDA-Public Use
  Company Number: US-SMITH AND NEPHEW, INC-2017SMT00057

PATIENT
  Age: 88 Year
  Sex: Male
  Weight: 68.27 kg

DRUGS (7)
  1. UNSPECIFIED HYPERTENSION MEDICATION [Concomitant]
  2. UNSPECIFIED HYPERLIPIDEMIA MEDICATION [Concomitant]
  3. COREG [Concomitant]
     Active Substance: CARVEDILOL
  4. REGRANEX [Suspect]
     Active Substance: BECAPLERMIN
     Indication: PERIPHERAL VASCULAR DISORDER
     Dosage: UNK, 1X/DAY
     Route: 061
     Dates: start: 2017
  5. REGRANEX [Suspect]
     Active Substance: BECAPLERMIN
     Dosage: UNK, EVERY 48 HOURS
     Route: 061
     Dates: start: 2017, end: 201701
  6. PLAVIX [Concomitant]
     Active Substance: CLOPIDOGREL BISULFATE
     Dosage: 75 MG, 1X/DAY
  7. UNSPECIFIED HYPOTHYROIDISM MEDICATION [Concomitant]

REACTIONS (6)
  - Toe amputation [Recovered/Resolved with Sequelae]
  - Osteomyelitis [Recovering/Resolving]
  - Surgery [Unknown]
  - Product use issue [Unknown]
  - Off label use [Unknown]
  - Cellulitis [Recovering/Resolving]

NARRATIVE: CASE EVENT DATE: 2017
